FAERS Safety Report 6361160-9 (Version None)
Quarter: 2009Q3

REPORT INFORMATION
  Report Type: 
  Country: None (occurrence: None)
  Receive Date: 20090918
  Receipt Date: 20090911
  Transmission Date: 20100115
  Serious: Yes (Death)
  Sender: FDA-Public Use
  Company Number: JP-ABBOTT-09P-087-0594834-00

PATIENT
  Age: 85 Year
  Sex: Male
  Weight: 56 kg

DRUGS (7)
  1. LEUPLIN SR FOR INJECTION 11.25 MG [Suspect]
     Indication: PROSTATE CANCER STAGE III
     Route: 058
     Dates: start: 20071013, end: 20071013
  2. LEUPLIN SR FOR INJECTION 11.25 MG [Suspect]
  3. LEUPLIN FOR INJECTION 3.75 MG [Suspect]
     Indication: PROSTATE CANCER STAGE III
     Dates: start: 20070526, end: 20070915
  4. CASODEX [Concomitant]
     Indication: PROSTATE CANCER STAGE III
     Route: 048
     Dates: start: 20070512, end: 20071226
  5. ASPIRIN [Concomitant]
     Indication: MYOCARDIAL INFARCTION
     Route: 048
  6. CILOSTATE [Concomitant]
     Indication: MYOCARDIAL INFARCTION
     Route: 048
  7. DILTIAZEM HYDROCHLORIDE [Concomitant]
     Indication: HYPERTENSION
     Route: 048

REACTIONS (1)
  - MARASMUS [None]
